FAERS Safety Report 17817504 (Version 1)
Quarter: 2020Q2

REPORT INFORMATION
  Report Type: Spontaneous
  Country: JP (occurrence: JP)
  Receive Date: 20200522
  Receipt Date: 20200522
  Transmission Date: 20200714
  Serious: Yes (Hospitalization, Other)
  Sender: FDA-Public Use
  Company Number: JP-GILEAD-2020-0467893

PATIENT
  Age: 38 Year
  Sex: Male

DRUGS (5)
  1. VIDARABINE [Concomitant]
     Active Substance: VIDARABINE
     Indication: MENINGITIS ASEPTIC
  2. STRIBILD [Suspect]
     Active Substance: COBICISTAT\ELVITEGRAVIR\EMTRICITABINE\TENOFOVIR DISOPROXIL FUMARATE
     Indication: HIV INFECTION
     Dosage: UNK
     Route: 065
  3. ACICLOVIR [Concomitant]
     Active Substance: ACYCLOVIR
     Indication: MENINGITIS ASEPTIC
  4. VIDARABINE [Concomitant]
     Active Substance: VIDARABINE
     Indication: VARICELLA ZOSTER VIRUS INFECTION
     Dosage: 10 MG/KG EVERY DAY
     Route: 042
  5. ACICLOVIR [Concomitant]
     Active Substance: ACYCLOVIR
     Indication: VARICELLA ZOSTER VIRUS INFECTION
     Dosage: 10 UNK
     Route: 065

REACTIONS (2)
  - Necrotising retinitis [Unknown]
  - Immune reconstitution inflammatory syndrome [Unknown]
